FAERS Safety Report 13113685 (Version 1)
Quarter: 2017Q1

REPORT INFORMATION
  Report Type: Spontaneous
  Country: CN (occurrence: CN)
  Receive Date: 20170113
  Receipt Date: 20170113
  Transmission Date: 20170428
  Serious: Yes (Other)
  Sender: FDA-Public Use
  Company Number: CN-BRISTOL-MYERS SQUIBB COMPANY-BMS-2017-001806

PATIENT
  Age: 23 Year
  Sex: Female
  Weight: 56 kg

DRUGS (2)
  1. LAMIVUDINE AND ZIDOVUDINE [Concomitant]
     Active Substance: LAMIVUDINE\ZIDOVUDINE
     Indication: VIRAL INFECTION
     Dosage: UNK
     Route: 065
     Dates: start: 201608
  2. EFAVIRENZ [Suspect]
     Active Substance: EFAVIRENZ
     Indication: VIRAL INFECTION
     Dosage: 0.6 G, QD
     Route: 065
     Dates: start: 20160816, end: 20161007

REACTIONS (1)
  - Hepatocellular injury [Recovering/Resolving]

NARRATIVE: CASE EVENT DATE: 20161007
